FAERS Safety Report 9241932 (Version 1)
Quarter: 2013Q2

REPORT INFORMATION
  Report Type: Spontaneous
  Country: US (occurrence: US)
  Receive Date: 20130419
  Receipt Date: 20130419
  Transmission Date: 20140414
  Serious: Yes (Hospitalization)
  Sender: FDA-Public Use
  Company Number: US-NOVOPROD-375502

PATIENT
  Age: 44 Year
  Sex: Female
  Weight: 49.89 kg

DRUGS (2)
  1. NOVOLOG MIX 70/30 FLEXPEN [Suspect]
     Indication: TYPE 2 DIABETES MELLITUS
     Dosage: 6 UNITS IN THE AM, 3 UNITS IN THE PM
     Route: 058
     Dates: start: 20130323, end: 20130407
  2. NOVOLOG MIX 70/30 FLEXPEN [Suspect]
     Dosage: 65 IN AM, 30 IN PM
     Route: 058
     Dates: start: 20130409

REACTIONS (4)
  - Dehydration [Unknown]
  - Incorrect dose administered [Recovered/Resolved]
  - Hyperglycaemic unconsciousness [Recovered/Resolved]
  - Vomiting [Unknown]
